FAERS Safety Report 20147493 (Version 10)
Quarter: 2024Q1

REPORT INFORMATION
  Report Type: Spontaneous
  Country: US (occurrence: US)
  Receive Date: 20211203
  Receipt Date: 20240108
  Transmission Date: 20240410
  Serious: No
  Sender: FDA-Public Use
  Company Number: US-SA-SAC20211129000762

PATIENT
  Age: 69 Year
  Sex: Female

DRUGS (2)
  1. DUPIXENT [Suspect]
     Active Substance: DUPILUMAB
     Indication: Dermatitis atopic
     Dosage: 600 MG, 1X
     Route: 058
     Dates: start: 20210415, end: 20210415
  2. DUPIXENT [Suspect]
     Active Substance: DUPILUMAB
     Dosage: 300 MG, QOW
     Route: 058
     Dates: start: 2021

REACTIONS (10)
  - Eye disorder [Unknown]
  - Visual impairment [Unknown]
  - Ocular hyperaemia [Unknown]
  - Eye swelling [Unknown]
  - Dry eye [Unknown]
  - Blepharitis [Unknown]
  - Eye pruritus [Unknown]
  - Eye irritation [Unknown]
  - Arthralgia [Unknown]
  - Inappropriate schedule of product administration [Unknown]

NARRATIVE: CASE EVENT DATE: 20210101
